FAERS Safety Report 25661739 (Version 2)
Quarter: 2025Q3

REPORT INFORMATION
  Report Type: Spontaneous
  Country: RU (occurrence: RU)
  Receive Date: 20250808
  Receipt Date: 20250813
  Transmission Date: 20251020
  Serious: No
  Sender: NOVARTIS
  Company Number: RU-002147023-NVSC2025RU122695

PATIENT

DRUGS (2)
  1. CANAKINUMAB [Suspect]
     Active Substance: CANAKINUMAB
     Indication: Familial mediterranean fever
     Route: 065
  2. COLCHICINE [Concomitant]
     Active Substance: COLCHICINE
     Indication: Familial mediterranean fever
     Route: 065

REACTIONS (1)
  - Familial mediterranean fever [Unknown]
